FAERS Safety Report 23185562 (Version 2)
Quarter: 2023Q4

REPORT INFORMATION
  Report Type: Other
  Country: IT (occurrence: IT)
  Receive Date: 20231115
  Receipt Date: 20231122
  Transmission Date: 20240110
  Serious: Yes (Hospitalization)
  Sender: FDA-Public Use
  Company Number: IT-ALVOGEN-2023092554

PATIENT

DRUGS (7)
  1. OXYCODONE [Suspect]
     Active Substance: OXYCODONE
     Indication: Back pain
     Dates: start: 202210
  2. OXYCODONE [Suspect]
     Active Substance: OXYCODONE
     Indication: Back pain
     Dates: start: 202211
  3. OXYCODONE [Suspect]
     Active Substance: OXYCODONE
     Indication: Back pain
     Dosage: DOSE REDUCED
  4. PREGABALIN [Concomitant]
     Active Substance: PREGABALIN
     Indication: Back pain
  5. PREGABALIN [Concomitant]
     Active Substance: PREGABALIN
     Indication: Back pain
  6. PREGABALIN [Concomitant]
     Active Substance: PREGABALIN
     Indication: Back pain
  7. PREGABALIN [Concomitant]
     Active Substance: PREGABALIN
     Indication: Back pain

REACTIONS (2)
  - Hyperaesthesia [Recovering/Resolving]
  - Drug ineffective [Unknown]

NARRATIVE: CASE EVENT DATE: 20220101
